FAERS Safety Report 15294956 (Version 1)
Quarter: 2018Q3

REPORT INFORMATION
  Report Type: Spontaneous
  Country: US (occurrence: US)
  Receive Date: 20180807
  Receipt Date: 20180807
  Transmission Date: 20181010
  Serious: Yes (Hospitalization, Other)
  Sender: FDA-Public Use
  Company Number: None

PATIENT
  Age: 31 Year
  Sex: Male
  Weight: 103.5 kg

DRUGS (4)
  1. REMICADE [Suspect]
     Active Substance: INFLIXIMAB
     Indication: CROHN^S DISEASE
     Dosage: ?          OTHER FREQUENCY:EVERY 8 WEEKS INFU;?
     Route: 042
     Dates: start: 20170731, end: 20180402
  2. VISTARIL [Concomitant]
     Active Substance: HYDROXYZINE PAMOATE
  3. METOPROLOL. [Concomitant]
     Active Substance: METOPROLOL
  4. ZOLOFT [Concomitant]
     Active Substance: SERTRALINE HYDROCHLORIDE

REACTIONS (2)
  - Skin cancer [None]
  - Psoriasis [None]

NARRATIVE: CASE EVENT DATE: 20180402
